FAERS Safety Report 21633136 (Version 3)
Quarter: 2023Q4

REPORT INFORMATION
  Report Type: Spontaneous
  Country: US (occurrence: US)
  Receive Date: 20221123
  Receipt Date: 20231024
  Transmission Date: 20240110
  Serious: No
  Sender: FDA-Public Use
  Company Number: US-PFIZER INC-PV202200108627

PATIENT
  Age: 56 Year
  Sex: Female

DRUGS (1)
  1. IBRANCE [Suspect]
     Active Substance: PALBOCICLIB
     Dosage: 100 MG
     Dates: start: 20201110

REACTIONS (4)
  - Insomnia [Not Recovered/Not Resolved]
  - Productive cough [Unknown]
  - Alopecia [Unknown]
  - COVID-19 [Recovering/Resolving]
